FAERS Safety Report 9842271 (Version 1)
Quarter: 2014Q1

REPORT INFORMATION
  Report Type: Spontaneous
  Country: US (occurrence: US)
  Receive Date: 20140124
  Receipt Date: 20140124
  Transmission Date: 20141002
  Serious: Yes (Other)
  Sender: FDA-Public Use
  Company Number: US-PFIZER INC-2014018282

PATIENT
  Sex: Male

DRUGS (1)
  1. ZYVOX [Suspect]
     Dosage: UNK
     Dates: end: 201401

REACTIONS (8)
  - Staphylococcal infection [Unknown]
  - Subcutaneous abscess [Unknown]
  - Gingivitis [Unknown]
  - Furuncle [Unknown]
  - Staphylococcal skin infection [Unknown]
  - Tooth infection [Unknown]
  - Skin disorder [Unknown]
  - Dry skin [Unknown]
